FAERS Safety Report 9303125 (Version 1)
Quarter: 2013Q2

REPORT INFORMATION
  Report Type: Report from Study
  Country: KH (occurrence: KH)
  Receive Date: 20130522
  Receipt Date: 20130522
  Transmission Date: 20140414
  Serious: Yes (Death, Other)
  Sender: FDA-Public Use
  Company Number: PHHY2013KH050531

PATIENT
  Sex: Male

DRUGS (1)
  1. GLIVEC [Suspect]
     Indication: CHRONIC MYELOID LEUKAEMIA
     Dosage: 400 MG

REACTIONS (5)
  - Death [Fatal]
  - Lung adenocarcinoma [Unknown]
  - Second primary malignancy [Unknown]
  - Lymphadenopathy [Unknown]
  - General physical health deterioration [Unknown]
